FAERS Safety Report 9401483 (Version 1)
Quarter: 2013Q3

REPORT INFORMATION
  Report Type: Spontaneous
  Country: US (occurrence: US)
  Receive Date: 20130716
  Receipt Date: 20130716
  Transmission Date: 20140515
  Serious: Yes (Hospitalization, Other)
  Sender: FDA-Public Use
  Company Number: US-AMGEN-USASP2013048078

PATIENT
  Age: 54 Year
  Sex: Female
  Weight: 72.56 kg

DRUGS (6)
  1. ENBREL [Suspect]
     Indication: PRODUCT USED FOR UNKNOWN INDICATION
     Dosage: UNK
     Route: 065
  2. HUMIRA [Suspect]
     Indication: RHEUMATOID ARTHRITIS
     Dosage: 40 MG, 1 IN TWO WEEKS
     Route: 065
     Dates: start: 201206, end: 201212
  3. PLAQUENIL                          /00072602/ [Concomitant]
     Indication: RHEUMATOID ARTHRITIS
     Dosage: UNK
  4. CYMBALTA [Concomitant]
     Indication: FIBROMYALGIA
     Dosage: UNK
  5. IRON [Concomitant]
     Indication: MINERAL SUPPLEMENTATION
     Dosage: UNK
  6. MULTIVITAMIN                       /00097801/ [Concomitant]
     Dosage: UNK

REACTIONS (4)
  - Atrial flutter [Unknown]
  - Pericarditis [Recovered/Resolved]
  - Chest pain [Recovered/Resolved]
  - Injection site cellulitis [Unknown]
